FAERS Safety Report 7860183-8 (Version None)
Quarter: 2011Q4

REPORT INFORMATION
  Report Type: 
  Country: None (occurrence: None)
  Receive Date: 20111027
  Receipt Date: 20111017
  Transmission Date: 20120403
  Serious: Yes (Death)
  Sender: FDA-Public Use
  Company Number: GB-ROCHE-GNE321846

PATIENT
  Sex: Male

DRUGS (1)
  1. LUCENTIS [Suspect]
     Indication: PRODUCT USED FOR UNKNOWN INDICATION
     Route: 050

REACTIONS (6)
  - PULMONARY FIBROSIS [None]
  - ATRIAL FIBRILLATION [None]
  - MYOCARDIAL ISCHAEMIA [None]
  - ASBESTOSIS [None]
  - BRAIN STEM STROKE [None]
  - SQUAMOUS CELL CARCINOMA [None]
